FAERS Safety Report 7884415-5 (Version None)
Quarter: 2011Q4

REPORT INFORMATION
  Report Type: 
  Country: None (occurrence: None)
  Receive Date: 20111102
  Receipt Date: 20110818
  Transmission Date: 20120403
  Serious: No
  Sender: FDA-Public Use
  Company Number: US-ASTRAZENECA-2011SE42927

PATIENT
  Age: 62 Year
  Sex: Male

DRUGS (3)
  1. MAGNESIUM [Concomitant]
  2. VANDETANIB [Suspect]
     Route: 048
  3. VANDETANIB [Suspect]
     Indication: THYROID CANCER
     Route: 048

REACTIONS (5)
  - ORAL PAIN [None]
  - HEART RATE INCREASED [None]
  - CHEST DISCOMFORT [None]
  - PYREXIA [None]
  - SUNBURN [None]
